FAERS Safety Report 20726568 (Version 1)
Quarter: 2022Q2

REPORT INFORMATION
  Report Type: Report from Study
  Country: US (occurrence: US)
  Receive Date: 20220419
  Receipt Date: 20220419
  Transmission Date: 20220721
  Serious: Yes (Other)
  Sender: FDA-Public Use
  Company Number: US-JAZZ-2021-US-020669

PATIENT
  Sex: Female

DRUGS (13)
  1. XYREM [Suspect]
     Active Substance: SODIUM OXYBATE
     Indication: Somnolence
     Dosage: 2.5 GRAM, BID
     Route: 048
     Dates: start: 200903, end: 200903
  2. XYREM [Suspect]
     Active Substance: SODIUM OXYBATE
     Dosage: DOSE ADJUSTMENT
     Route: 048
     Dates: start: 200903, end: 200904
  3. XYREM [Suspect]
     Active Substance: SODIUM OXYBATE
     Dosage: 4.5 GRAM, BID
     Route: 048
     Dates: start: 200904, end: 201009
  4. XYREM [Suspect]
     Active Substance: SODIUM OXYBATE
     Dosage: 4.5 GRAM, BID
     Route: 048
     Dates: start: 201102, end: 201307
  5. XYREM [Suspect]
     Active Substance: SODIUM OXYBATE
     Dosage: 4.5 GRAM, BID
     Route: 048
     Dates: start: 201602
  6. PROPRANOLOL [Concomitant]
     Active Substance: PROPRANOLOL HYDROCHLORIDE
     Dosage: 80 MILLIGRAM
     Dates: start: 20160105
  7. PROVIGIL [Concomitant]
     Active Substance: MODAFINIL
     Dosage: 200 MILLIGRAM
     Dates: start: 20160105
  8. ACETAMINOPHEN [Concomitant]
     Active Substance: ACETAMINOPHEN
     Dosage: 500 MILLIGRAM
     Dates: start: 20160105
  9. XEOMIN [Concomitant]
     Active Substance: INCOBOTULINUMTOXINA
     Dosage: 0000
     Dates: start: 20160105
  10. VITAMIN B12 [Concomitant]
     Active Substance: CYANOCOBALAMIN
     Dosage: 1000 MICROGRAM
     Dates: start: 20140101
  11. VITAMIN D3 [Concomitant]
     Active Substance: CHOLECALCIFEROL
     Dosage: 0000
     Dates: start: 20140101
  12. ZINC GLUCONATE [Concomitant]
     Active Substance: ZINC GLUCONATE
     Dosage: 50 MILLIGRAM
     Dates: start: 20160901
  13. VALTREX [Concomitant]
     Active Substance: VALACYCLOVIR HYDROCHLORIDE
     Dosage: 1000 MILLIGRAM

REACTIONS (16)
  - Coeliac artery stenosis [Recovered/Resolved]
  - Myelodysplastic syndrome [Unknown]
  - Right ventricular failure [Unknown]
  - Genital herpes simplex [Unknown]
  - Mitral valve incompetence [Unknown]
  - Glucose tolerance impaired [Unknown]
  - Macrocytosis [Unknown]
  - Vitamin D deficiency [Unknown]
  - Rectal polyp [Unknown]
  - Hyperphosphataemia [Unknown]
  - Smear cervix abnormal [Unknown]
  - Cervical dysplasia [Unknown]
  - Osteopenia [Unknown]
  - Hyponatraemia [Unknown]
  - Mitral valve prolapse [Unknown]
  - Hypocalcaemia [Unknown]
